FAERS Safety Report 6837949-6 (Version None)
Quarter: 2010Q3

REPORT INFORMATION
  Report Type: 
  Country: None (occurrence: None)
  Receive Date: 20100713
  Receipt Date: 20070430
  Transmission Date: 20110219
  Serious: No
  Sender: FDA-Public Use
  Company Number: US-PFIZER INC-2007035257

PATIENT
  Sex: Female
  Weight: 88.636 kg

DRUGS (6)
  1. CHANTIX [Suspect]
     Indication: SMOKING CESSATION THERAPY
     Dates: start: 20070101, end: 20070101
  2. VALSARTAN [Concomitant]
  3. PREVACID [Concomitant]
  4. EFFEXOR [Concomitant]
  5. CYMBALTA [Concomitant]
  6. ANTIDEPRESSANTS [Concomitant]
     Indication: DEPRESSION

REACTIONS (2)
  - NAUSEA [None]
  - VOMITING [None]
